FAERS Safety Report 8024448-1 (Version None)
Quarter: 2012Q1

REPORT INFORMATION
  Report Type: 
  Country: None (occurrence: None)
  Receive Date: 20120105
  Receipt Date: 20120102
  Transmission Date: 20120608
  Serious: Yes (Life-Threatening, Other)
  Sender: FDA-Public Use
  Company Number: PHEH2012US000450

PATIENT
  Sex: Female

DRUGS (1)
  1. RECLAST [Suspect]
     Dosage: UNK UKN, UNK
     Route: 042

REACTIONS (12)
  - FEELING ABNORMAL [None]
  - ORAL INFECTION [None]
  - BACK DISORDER [None]
  - GAIT DISTURBANCE [None]
  - EXOSTOSIS [None]
  - UPPER EXTREMITY MASS [None]
  - TOOTH LOSS [None]
  - JOINT SWELLING [None]
  - CONFUSIONAL STATE [None]
  - CARDIAC FAILURE CONGESTIVE [None]
  - DYSPNOEA [None]
  - RENAL FAILURE [None]
